FAERS Safety Report 16503901 (Version 1)
Quarter: 2019Q3

REPORT INFORMATION
  Report Type: Spontaneous
  Country: CN (occurrence: CN)
  Receive Date: 20190701
  Receipt Date: 20190701
  Transmission Date: 20191004
  Serious: No
  Sender: FDA-Public Use
  Company Number: CN-B.I. PHARMACEUTICALS,INC./RIDGEFIELD-2019-BI-027889

PATIENT
  Age: 46 Year
  Sex: Male
  Weight: 50 kg

DRUGS (1)
  1. JARDIANCE [Suspect]
     Active Substance: EMPAGLIFLOZIN
     Indication: TYPE 2 DIABETES MELLITUS
     Route: 048
     Dates: start: 20190426, end: 20190526

REACTIONS (2)
  - Blood urea increased [Unknown]
  - Blood ketone body increased [Unknown]

NARRATIVE: CASE EVENT DATE: 20190527
